FAERS Safety Report 10256575 (Version 1)
Quarter: 2014Q2

REPORT INFORMATION
  Report Type: Report from Study
  Country: BR (occurrence: BR)
  Receive Date: 20140624
  Receipt Date: 20140624
  Transmission Date: 20141212
  Serious: Yes (Other)
  Sender: FDA-Public Use
  Company Number: PHHY2014BR074774

PATIENT
  Sex: Female
  Weight: 70 kg

DRUGS (4)
  1. GALVUS MET [Suspect]
     Indication: DIABETES MELLITUS
     Dosage: UNK (500/ 50 MG), UNK
     Dates: start: 2009
  2. GALVUS MET [Suspect]
     Dosage: 2 DF (1000/ 50 MG), PER DAY
  3. SIMVASTATIN [Suspect]
     Indication: BLOOD CHOLESTEROL ABNORMAL
     Dosage: 2 DF, DAILY
     Dates: start: 2002
  4. GLIMEPIRIDE [Concomitant]
     Indication: DIABETES MELLITUS
     Dosage: 1 DF (2 MG), DAILY
     Dates: start: 2009

REACTIONS (14)
  - Syncope [Recovering/Resolving]
  - Convulsion [Recovering/Resolving]
  - Astigmatism [Recovering/Resolving]
  - Myopia [Recovering/Resolving]
  - Hypoglycaemia [Recovering/Resolving]
  - Hernia obstructive [Recovering/Resolving]
  - Vision blurred [Recovering/Resolving]
  - Loss of consciousness [Recovering/Resolving]
  - Malaise [Recovering/Resolving]
  - Gait disturbance [Unknown]
  - Spinal disorder [Unknown]
  - Tremor [Recovering/Resolving]
  - Blood glucose increased [Recovering/Resolving]
  - Blood glucose fluctuation [Recovering/Resolving]
